FAERS Safety Report 11403316 (Version 1)
Quarter: 2015Q3

REPORT INFORMATION
  Report Type: Spontaneous
  Country: US (occurrence: US)
  Receive Date: 20150821
  Receipt Date: 20150821
  Transmission Date: 20151125
  Serious: No
  Sender: FDA-Public Use
  Company Number: US-TEVA-494823USA

PATIENT
  Age: 88 Year
  Sex: Female

DRUGS (8)
  1. CLONIDINE. [Suspect]
     Active Substance: CLONIDINE
     Indication: PRODUCT USED FOR UNKNOWN INDICATION
     Dosage: .1 MILLIGRAM DAILY;
     Route: 062
     Dates: start: 20130515
  2. KEFLEX [Concomitant]
     Active Substance: CEPHALEXIN
  3. CRESTOR [Concomitant]
     Active Substance: ROSUVASTATIN CALCIUM
  4. FELDENE [Concomitant]
     Active Substance: PIROXICAM
  5. NIFEDIPINE. [Concomitant]
     Active Substance: NIFEDIPINE
  6. NORVASC [Concomitant]
     Active Substance: AMLODIPINE BESYLATE
  7. AMLODIPINE [Concomitant]
     Active Substance: AMLODIPINE BESYLATE
  8. LISINOPRIL. [Concomitant]
     Active Substance: LISINOPRIL

REACTIONS (8)
  - Rash [Recovered/Resolved]
  - Erythema [Unknown]
  - Dermatitis contact [Unknown]
  - Application site irritation [Unknown]
  - Application site erythema [Unknown]
  - Application site pain [Unknown]
  - Application site pruritus [Unknown]
  - Constipation [Unknown]

NARRATIVE: CASE EVENT DATE: 20140712
